FAERS Safety Report 4277365-7 (Version None)
Quarter: 2004Q1

REPORT INFORMATION
  Report Type: 
  Country: None (occurrence: None)
  Receive Date: 20040122
  Receipt Date: 20040114
  Transmission Date: 20041129
  Serious: Yes (Hospitalization)
  Sender: FDA-Public Use
  Company Number: PHRM2004FR00512

PATIENT
  Age: 53 Year
  Sex: Female

DRUGS (5)
  1. VOLTAREN [Suspect]
     Indication: BACK PAIN
     Dosage: UNK, UNK
     Route: 065
     Dates: start: 20030515, end: 20030630
  2. ESBERIVEN [Suspect]
     Dosage: 3 DF / DAY
     Route: 048
     Dates: start: 19930615, end: 20030703
  3. HEXAQUINE [Suspect]
     Dosage: UNK, UNK
     Route: 065
     Dates: start: 19980615, end: 20030703
  4. FUROSEMIDE [Suspect]
     Dosage: UNK, UNK
     Route: 065
     Dates: start: 20030515, end: 20030701
  5. TOCO [Suspect]
     Dosage: 1 DF, QD
     Route: 048
     Dates: start: 19980615, end: 20030701

REACTIONS (7)
  - ALANINE AMINOTRANSFERASE INCREASED [None]
  - ARTHRALGIA [None]
  - ASPARTATE AMINOTRANSFERASE INCREASED [None]
  - BLOOD ALKALINE PHOSPHATASE INCREASED [None]
  - MALAISE [None]
  - MYALGIA [None]
  - PYREXIA [None]
